FAERS Safety Report 12634356 (Version 1)
Quarter: 2016Q3

REPORT INFORMATION
  Report Type: Spontaneous
  Country: US (occurrence: US)
  Receive Date: 20160809
  Receipt Date: 20160809
  Transmission Date: 20161109
  Serious: No
  Sender: FDA-Public Use
  Company Number: US-WEST-WARD PHARMACEUTICALS CORP.-US-H14001-15-01805

PATIENT
  Age: 81 Year
  Sex: Male
  Weight: 93.52 kg

DRUGS (6)
  1. VERSED [Suspect]
     Active Substance: MIDAZOLAM HYDROCHLORIDE
     Indication: ANXIETY
     Route: 042
  2. BUPIVICAINE [Concomitant]
     Active Substance: BUPIVACAINE
     Indication: PAIN
     Route: 065
  3. IOHEXOL [Concomitant]
     Active Substance: IOHEXOL
     Indication: SCAN WITH CONTRAST
     Route: 065
  4. LIDOCAINE. [Concomitant]
     Active Substance: LIDOCAINE
     Indication: PAIN
     Route: 065
  5. FENTANYL. [Suspect]
     Active Substance: FENTANYL
     Indication: PAIN
     Route: 042
  6. CELESTONE [Concomitant]
     Active Substance: BETAMETHASONE
     Indication: INFLAMMATION
     Route: 065

REACTIONS (3)
  - Heart rate decreased [Recovered/Resolved]
  - Cold sweat [Recovered/Resolved]
  - Blood pressure decreased [Recovered/Resolved]

NARRATIVE: CASE EVENT DATE: 20150803
